FAERS Safety Report 6751830-2 (Version None)
Quarter: 2010Q2

REPORT INFORMATION
  Report Type: 
  Country: None (occurrence: None)
  Receive Date: 20100602
  Receipt Date: 20100521
  Transmission Date: 20101027
  Serious: Yes (Other)
  Sender: FDA-Public Use
  Company Number: US-JNJFOC-20100510339

PATIENT
  Age: 9 Year
  Sex: Female
  Weight: 32.21 kg

DRUGS (2)
  1. CHILDREN'S TYLENOL PLUS MULTI-SYMPTOM COLD [Suspect]
     Indication: MULTIPLE ALLERGIES
     Dosage: AS DIRECTED
     Route: 048
  2. CHILDREN'S ZYRTEC ALLERGY [Suspect]
     Indication: MULTIPLE ALLERGIES
     Route: 048

REACTIONS (4)
  - DEHYDRATION [None]
  - GASTRITIS [None]
  - PRODUCT QUALITY ISSUE [None]
  - VOMITING [None]
